FAERS Safety Report 18140760 (Version 1)
Quarter: 2020Q3

REPORT INFORMATION
  Report Type: Spontaneous
  Country: US (occurrence: US)
  Receive Date: 20200812
  Receipt Date: 20200812
  Transmission Date: 20201103
  Serious: Yes (Hospitalization, Other)
  Sender: FDA-Public Use
  Company Number: US-009507513-2008USA004674

PATIENT
  Sex: Male

DRUGS (7)
  1. DOXORUBICIN [Suspect]
     Active Substance: DOXORUBICIN
     Indication: DESMOPLASTIC SMALL ROUND CELL TUMOUR
     Dosage: UNK, CYCLICAL
  2. IFOSFAMIDE. [Suspect]
     Active Substance: IFOSFAMIDE
     Indication: DESMOPLASTIC SMALL ROUND CELL TUMOUR
     Dosage: UNK, CYCLICAL
  3. VINCRISTINE [Suspect]
     Active Substance: VINCRISTINE
     Indication: DESMOPLASTIC SMALL ROUND CELL TUMOUR
     Dosage: UNK, CYCLICAL
  4. ETOPOSIDE. [Suspect]
     Active Substance: ETOPOSIDE
     Indication: DESMOPLASTIC SMALL ROUND CELL TUMOUR
     Dosage: UNK, CYCLICAL
  5. TEMODAR [Suspect]
     Active Substance: TEMOZOLOMIDE
     Indication: DESMOPLASTIC SMALL ROUND CELL TUMOUR
     Dosage: UNK, CYCLICAL
  6. IRINOTECAN HYDROCHLORIDE. [Suspect]
     Active Substance: IRINOTECAN HYDROCHLORIDE
     Indication: DESMOPLASTIC SMALL ROUND CELL TUMOUR
     Dosage: UNK, CYCLICAL
  7. CYCLOPHOSPHAMIDE. [Suspect]
     Active Substance: CYCLOPHOSPHAMIDE
     Indication: DESMOPLASTIC SMALL ROUND CELL TUMOUR
     Dosage: UNK, CYCLICAL

REACTIONS (8)
  - Myelosuppression [Unknown]
  - Nausea [Unknown]
  - Off label use [Unknown]
  - Diarrhoea [Unknown]
  - Venoocclusive liver disease [Unknown]
  - Vomiting [Unknown]
  - Constipation [Unknown]
  - Clostridium difficile colitis [Unknown]
